FAERS Safety Report 15561541 (Version 1)
Quarter: 2018Q4

REPORT INFORMATION
  Report Type: Spontaneous
  Country: US (occurrence: US)
  Receive Date: 20181024
  Receipt Date: 20181024
  Transmission Date: 20190205
  Serious: No
  Sender: FDA-Public Use
  Company Number: None

PATIENT
  Age: 61 Year
  Sex: Female

DRUGS (1)
  1. TYKERB [Suspect]
     Active Substance: LAPATINIB DITOSYLATE
     Route: 048
     Dates: start: 20180716

REACTIONS (4)
  - Stomatitis [None]
  - Oral pain [None]
  - Hypoaesthesia [None]
  - Dysgeusia [None]

NARRATIVE: CASE EVENT DATE: 20181022
